FAERS Safety Report 16106327 (Version 1)
Quarter: 2019Q1

REPORT INFORMATION
  Report Type: Spontaneous
  Country: US (occurrence: US)
  Receive Date: 20190322
  Receipt Date: 20190322
  Transmission Date: 20190418
  Serious: No
  Sender: FDA-Public Use
  Company Number: US-SEBELA IRELAND LIMITED-2018SEB00064

PATIENT
  Sex: Female

DRUGS (1)
  1. MICORT HC [Suspect]
     Active Substance: HYDROCORTISONE ACETATE

REACTIONS (2)
  - Pruritus [Unknown]
  - Rash vesicular [Unknown]
